FAERS Safety Report 8821788 (Version 2)
Quarter: 2012Q4

REPORT INFORMATION
  Report Type: 
  Country: US (occurrence: US)
  Receive Date: 20121002
  Receipt Date: 20121121
  Transmission Date: 20130627
  Serious: Yes (Hospitalization)
  Sender: FDA-Public Use
  Company Number: US-009507513-2012SP006669

PATIENT

DRUGS (1)
  1. NUVARING [Suspect]
     Indication: PRODUCT USED FOR UNKNOWN INDICATION
     Dates: start: 200810, end: 201002

REACTIONS (10)
  - Intracranial venous sinus thrombosis [Recovering/Resolving]
  - Cerebrovascular disorder [Unknown]
  - Sinusitis [Not Recovered/Not Resolved]
  - Migraine [Not Recovered/Not Resolved]
  - Pregnancy on contraceptive [Unknown]
  - Dermatitis contact [Unknown]
  - Obesity [Unknown]
  - Vomiting [Unknown]
  - Headache [Recovered/Resolved]
  - Nausea [Unknown]
